FAERS Safety Report 9244992 (Version 5)
Quarter: 2014Q1

REPORT INFORMATION
  Report Type: Spontaneous
  Country: JP (occurrence: JP)
  Receive Date: 20130422
  Receipt Date: 20140113
  Transmission Date: 20141002
  Serious: Yes (Other)
  Sender: FDA-Public Use
  Company Number: JP-JNJFOC-20130313938

PATIENT
  Age: 59 Year
  Sex: Female
  Weight: 43 kg

DRUGS (4)
  1. ITRIZOLE [Suspect]
     Indication: PLASMA CELL MYELOMA
     Route: 048
     Dates: start: 201006, end: 201007
  2. VELCADE [Interacting]
     Indication: PLASMA CELL MYELOMA
     Route: 042
     Dates: start: 201006, end: 201007
  3. DECADRON [Concomitant]
     Indication: PLASMA CELL MYELOMA
     Route: 048
     Dates: start: 201006, end: 201007
  4. LENALIDOMIDE [Concomitant]
     Indication: PLASMA CELL MYELOMA
     Route: 048
     Dates: start: 201012, end: 201105

REACTIONS (5)
  - Platelet count decreased [Recovered/Resolved]
  - Drug interaction [Unknown]
  - White blood cell count decreased [Recovered/Resolved]
  - Neuropathy peripheral [Recovered/Resolved]
  - Off label use [Unknown]
